FAERS Safety Report 19160103 (Version 2)
Quarter: 2021Q2

REPORT INFORMATION
  Report Type: Spontaneous
  Country: US (occurrence: US)
  Receive Date: 20210420
  Receipt Date: 20210514
  Transmission Date: 20210717
  Serious: Yes (Other)
  Sender: FDA-Public Use
  Company Number: US-BAYER-2021-127757

PATIENT
  Age: 39 Year
  Sex: Male

DRUGS (1)
  1. KOGENATE FS [Suspect]
     Active Substance: ANTIHEMOPHILIC FACTOR, HUMAN RECOMBINANT
     Dosage: 4400 IU
     Route: 042

REACTIONS (2)
  - Joint stiffness [Not Recovered/Not Resolved]
  - Haemarthrosis [None]

NARRATIVE: CASE EVENT DATE: 20210414
